FAERS Safety Report 15711527 (Version 1)
Quarter: 2018Q4

REPORT INFORMATION
  Report Type: Spontaneous
  Country: ES (occurrence: ES)
  Receive Date: 20181211
  Receipt Date: 20181211
  Transmission Date: 20190205
  Serious: Yes (Death, Hospitalization, Other)
  Sender: FDA-Public Use
  Company Number: ES-AUROBINDO-AUR-APL-2018-012693

PATIENT
  Age: 64 Year
  Sex: Male

DRUGS (21)
  1. CAPECITABINE. [Suspect]
     Active Substance: CAPECITABINE
     Indication: RECTOSIGMOID CANCER STAGE IV
     Dosage: UNK
     Route: 065
  2. AFLIBERCEPT [Suspect]
     Active Substance: AFLIBERCEPT
     Indication: COLORECTAL CANCER METASTATIC
     Dosage: 340 MILLIGRAM, CYCLICAL
     Route: 041
     Dates: start: 20141125, end: 20141125
  3. AFLIBERCEPT [Suspect]
     Active Substance: AFLIBERCEPT
     Indication: RECTOSIGMOID CANCER STAGE IV
  4. FOLINIC ACID [Suspect]
     Active Substance: LEUCOVORIN
     Indication: RECTOSIGMOID CANCER STAGE IV
     Dosage: UNK
     Route: 065
  5. LORAZEPAM. [Concomitant]
     Active Substance: LORAZEPAM
     Indication: PRODUCT USED FOR UNKNOWN INDICATION
     Dosage: UNK
     Route: 065
     Dates: start: 20150131
  6. IRINOTECAN CONCENTRATE FOR SOLUTION FOR INFUSION [Suspect]
     Active Substance: IRINOTECAN
     Indication: PRODUCT USED FOR UNKNOWN INDICATION
     Dosage: 350 MILLIGRAM, CYCLICAL
     Route: 041
     Dates: start: 20141125, end: 20141125
  7. IRINOTECAN CONCENTRATE FOR SOLUTION FOR INFUSION [Suspect]
     Active Substance: IRINOTECAN
     Indication: COLORECTAL CANCER METASTATIC
  8. 5-FU                               /00098801/ [Suspect]
     Active Substance: FLUOROURACIL
     Indication: COLORECTAL CANCER METASTATIC
     Dosage: 780 MG
     Route: 040
     Dates: start: 20141125, end: 20141125
  9. OMEPRAZOLE. [Concomitant]
     Active Substance: OMEPRAZOLE
     Indication: PRODUCT USED FOR UNKNOWN INDICATION
     Dosage: UNK
     Route: 065
     Dates: start: 20150131
  10. 5-FU                               /00098801/ [Suspect]
     Active Substance: FLUOROURACIL
     Dosage: 4680 MILLIGRAM, CYCLICAL
     Route: 041
     Dates: start: 20141125, end: 20141125
  11. 5-FU                               /00098801/ [Suspect]
     Active Substance: FLUOROURACIL
     Indication: RECTOSIGMOID CANCER STAGE IV
     Dosage: 3740 MILLIGRAM, CYCLICAL
     Route: 041
     Dates: start: 20150113, end: 20150113
  12. IRINOTECAN CONCENTRATE FOR SOLUTION FOR INFUSION [Suspect]
     Active Substance: IRINOTECAN
     Indication: RECTOSIGMOID CANCER STAGE IV
  13. LEUCOVORIN                         /00566701/ [Suspect]
     Active Substance: LEUCOVORIN
     Indication: COLORECTAL CANCER METASTATIC
     Dosage: 780 MILLIGRAM, CYCLICAL
     Route: 041
     Dates: start: 20141125, end: 20141125
  14. CALCIUM FOLINATE [Suspect]
     Active Substance: LEUCOVORIN CALCIUM
     Indication: RECTOSIGMOID CANCER STAGE IV
     Dosage: UNK
     Route: 065
  15. BEVACIZUMAB. [Suspect]
     Active Substance: BEVACIZUMAB
     Indication: RECTOSIGMOID CANCER STAGE IV
     Dosage: UNK
     Route: 065
  16. FOLINIC ACID [Suspect]
     Active Substance: LEUCOVORIN
     Indication: METASTASES TO LIVER
  17. LIDOCAINE. [Concomitant]
     Active Substance: LIDOCAINE
     Indication: PRODUCT USED FOR UNKNOWN INDICATION
     Dosage: UNK
     Route: 065
     Dates: start: 20150113
  18. CETUXIMAB. [Concomitant]
     Active Substance: CETUXIMAB
     Indication: PRODUCT USED FOR UNKNOWN INDICATION
     Dosage: UNK
     Route: 065
  19. FOLFIRI [Concomitant]
     Active Substance: FLUOROURACIL\IRINOTECAN\LEUCOVORIN
     Indication: PRODUCT USED FOR UNKNOWN INDICATION
     Dosage: UNK
     Route: 065
  20. AFLIBERCEPT [Suspect]
     Active Substance: AFLIBERCEPT
     Indication: METASTASES TO LIVER
     Dosage: 340 MILLIGRAM, CYCLICAL
     Route: 041
     Dates: start: 20150113, end: 20150113
  21. OXALIPLATIN. [Concomitant]
     Active Substance: OXALIPLATIN
     Indication: PRODUCT USED FOR UNKNOWN INDICATION
     Dosage: UNK
     Route: 065

REACTIONS (27)
  - Fournier^s gangrene [Fatal]
  - Chills [Fatal]
  - Thrombocytopenia [Recovered/Resolved]
  - Neutropenia [Recovered/Resolved]
  - Clostridial infection [Fatal]
  - Tachycardia [Fatal]
  - Pyrexia [Fatal]
  - Urinary tract infection [Recovered/Resolved]
  - Neutrophilia [Fatal]
  - Blood creatinine increased [Fatal]
  - Leukocytosis [Fatal]
  - Off label use [Unknown]
  - Blood creatine phosphokinase increased [Fatal]
  - Coagulopathy [Fatal]
  - Induration [Fatal]
  - Prothrombin level decreased [Fatal]
  - Proteus infection [Fatal]
  - Erythema [Fatal]
  - Renal failure [Fatal]
  - Blood lactic acid increased [Fatal]
  - Hypotension [Fatal]
  - Candida infection [Fatal]
  - Inflammation [Fatal]
  - Epistaxis [Recovered/Resolved]
  - C-reactive protein increased [Fatal]
  - Tenderness [Fatal]
  - Klebsiella infection [Fatal]

NARRATIVE: CASE EVENT DATE: 20150125
